FAERS Safety Report 11699365 (Version 2)
Quarter: 2015Q4

REPORT INFORMATION
  Report Type: Spontaneous
  Country: SI (occurrence: SI)
  Receive Date: 20151104
  Receipt Date: 20151111
  Transmission Date: 20160304
  Serious: Yes (Other)
  Sender: FDA-Public Use
  Company Number: SI-ROCHE-1655531

PATIENT
  Age: 35 Year
  Sex: Female

DRUGS (19)
  1. XOLAIR [Suspect]
     Active Substance: OMALIZUMAB
     Route: 058
     Dates: start: 20150105
  2. XOLAIR [Suspect]
     Active Substance: OMALIZUMAB
     Route: 058
     Dates: start: 20150408
  3. XOLAIR [Suspect]
     Active Substance: OMALIZUMAB
     Route: 058
     Dates: start: 20150513
  4. XOLAIR [Suspect]
     Active Substance: OMALIZUMAB
     Route: 065
     Dates: start: 20150930
  5. XOLAIR [Suspect]
     Active Substance: OMALIZUMAB
     Indication: URTICARIA
     Dosage: OFF LABEL USE FOR FEBRILE STATUS
     Route: 058
     Dates: start: 20140825
  6. XOLAIR [Suspect]
     Active Substance: OMALIZUMAB
     Route: 058
     Dates: start: 20150311
  7. XOLAIR [Suspect]
     Active Substance: OMALIZUMAB
     Route: 058
     Dates: start: 20150902
  8. XOLAIR [Suspect]
     Active Substance: OMALIZUMAB
     Route: 065
     Dates: start: 20151014
  9. MEDROL [Concomitant]
     Active Substance: METHYLPREDNISOLONE
     Route: 065
     Dates: start: 20151014
  10. XOLAIR [Suspect]
     Active Substance: OMALIZUMAB
     Indication: CHRONIC SPONTANEOUS URTICARIA
     Route: 058
  11. XOLAIR [Suspect]
     Active Substance: OMALIZUMAB
     Dosage: OFF LABEL USE FOR EUTHYREOT HASHIMOTO TYREOIDITIS (AUTOIMMUNE THYROIDITIS)
     Route: 065
     Dates: start: 20150507
  12. MEDROL [Concomitant]
     Active Substance: METHYLPREDNISOLONE
     Route: 065
     Dates: start: 20140917
  13. XOLAIR [Suspect]
     Active Substance: OMALIZUMAB
     Indication: AUTOIMMUNE THYROIDITIS
     Dosage: OFF LABEL USE FOR FEBRILE STATUS
     Route: 058
     Dates: start: 20140917
  14. XOLAIR [Suspect]
     Active Substance: OMALIZUMAB
     Route: 065
     Dates: start: 20150819
  15. MEDROL [Concomitant]
     Active Substance: METHYLPREDNISOLONE
     Route: 065
     Dates: start: 20150513
  16. MEDROL [Concomitant]
     Active Substance: METHYLPREDNISOLONE
     Route: 065
     Dates: start: 20150902
  17. XOLAIR [Suspect]
     Active Substance: OMALIZUMAB
     Indication: PYREXIA
     Route: 058
     Dates: start: 20141203
  18. XOLAIR [Suspect]
     Active Substance: OMALIZUMAB
     Route: 058
     Dates: start: 20150715
  19. XOLAIR [Suspect]
     Active Substance: OMALIZUMAB
     Route: 058
     Dates: start: 20150210

REACTIONS (14)
  - Blood immunoglobulin E increased [Unknown]
  - Dizziness [Unknown]
  - Autoimmune thyroiditis [Not Recovered/Not Resolved]
  - Back pain [Unknown]
  - Nausea [Unknown]
  - Headache [Unknown]
  - Off label use [Unknown]
  - Chills [Unknown]
  - Haematoma [Recovered/Resolved]
  - Polymenorrhoea [Not Recovered/Not Resolved]
  - Pain in extremity [Unknown]
  - Menstruation irregular [Unknown]
  - Urticaria [Unknown]
  - Hypersensitivity [Unknown]
